FAERS Safety Report 14181532 (Version 1)
Quarter: 2017Q4

REPORT INFORMATION
  Report Type: Spontaneous
  Country: US (occurrence: US)
  Receive Date: 20171113
  Receipt Date: 20171113
  Transmission Date: 20180321
  Serious: No
  Sender: FDA-Public Use
  Company Number: US-SHIRE-US201726135

PATIENT
  Sex: Female

DRUGS (1)
  1. XIIDRA [Suspect]
     Active Substance: LIFITEGRAST
     Indication: DRY EYE
     Dosage: 1 GTT, OU BID
     Route: 065
     Dates: end: 201709

REACTIONS (6)
  - Instillation site reaction [Unknown]
  - Instillation site erythema [Unknown]
  - Instillation site pain [Unknown]
  - Vision blurred [Unknown]
  - Instillation site discharge [Unknown]
  - Drug ineffective [Unknown]
